FAERS Safety Report 5588259-9 (Version None)
Quarter: 2008Q1

REPORT INFORMATION
  Report Type: 
  Country: None (occurrence: None)
  Receive Date: 20080111
  Receipt Date: 20080103
  Transmission Date: 20080703
  Serious: Yes (Other)
  Sender: FDA-Public Use
  Company Number: GB-ASTRAZENECA-2007GB01972

PATIENT
  Age: 72 Year
  Sex: Female

DRUGS (14)
  1. LIDOCAINE [Suspect]
     Indication: ANAESTHESIA
     Route: 047
     Dates: start: 20070605, end: 20070605
  2. LIDOCAINE [Suspect]
     Indication: CATARACT OPERATION
     Route: 047
     Dates: start: 20070605, end: 20070605
  3. ADRENALINE [Suspect]
     Indication: CATARACT OPERATION
     Route: 047
     Dates: start: 20070605, end: 20070605
  4. ADRENALINE [Suspect]
     Indication: EYE IRRIGATION
     Route: 047
     Dates: start: 20070605, end: 20070605
  5. BETAMETHASONE [Suspect]
     Indication: CATARACT OPERATION
     Route: 047
     Dates: start: 20070605, end: 20070605
  6. CHLORAMPHENICOL [Suspect]
     Indication: CATARACT OPERATION
     Route: 047
     Dates: start: 20070605, end: 20070605
  7. CYCLOPENTOLATE HCL [Suspect]
     Indication: CATARACT OPERATION
     Route: 047
     Dates: start: 20070605, end: 20070605
  8. HYALURONATE SODIUM [Suspect]
     Indication: CATARACT OPERATION
     Route: 047
     Dates: start: 20070605, end: 20070605
  9. NEOMYCIN [Suspect]
     Indication: POSTOPERATIVE CARE
     Route: 047
     Dates: start: 20070605, end: 20070605
  10. OCUFEN [Suspect]
     Indication: CATARACT OPERATION
     Route: 047
     Dates: start: 20070605, end: 20070605
  11. PHENYLEPHRINE [Suspect]
     Indication: CATARACT OPERATION
     Route: 047
     Dates: start: 20070605, end: 20070605
  12. POVIDONE IODINE [Suspect]
     Indication: CATARACT OPERATION
     Route: 047
     Dates: start: 20070605, end: 20070605
  13. VANCOMYCIN [Suspect]
     Indication: CATARACT OPERATION
     Route: 047
     Dates: start: 20070605, end: 20070605
  14. BALANCED SALT SOLUTION [Suspect]

REACTIONS (1)
  - TOXIC ANTERIOR SEGMENT SYNDROME [None]
